FAERS Safety Report 10460887 (Version 1)
Quarter: 2014Q3

REPORT INFORMATION
  Report Type: Spontaneous
  Country: US (occurrence: None)
  Receive Date: 20140917
  Receipt Date: 20140917
  Transmission Date: 20150326
  Serious: Yes (Life-Threatening, Hospitalization)
  Sender: FDA-Public Use
  Company Number: None

PATIENT
  Age: 48 Year
  Sex: Female
  Weight: 97.52 kg

DRUGS (1)
  1. REMICADE [Suspect]
     Active Substance: INFLIXIMAB
     Indication: COLITIS ULCERATIVE
     Dosage: EVERY 2 WEEKS, INTO VEIN
     Dates: start: 20140517, end: 20140712

REACTIONS (3)
  - Hypersensitivity [None]
  - Sepsis [None]
  - Histoplasmosis disseminated [None]

NARRATIVE: CASE EVENT DATE: 20140719
